FAERS Safety Report 8151994-2 (Version None)
Quarter: 2012Q1

REPORT INFORMATION
  Report Type: 
  Country: None (occurrence: None)
  Receive Date: 20120221
  Receipt Date: 20120215
  Transmission Date: 20120608
  Serious: No
  Sender: FDA-Public Use
  Company Number: US-PFIZER INC-2012041380

PATIENT
  Sex: Male
  Weight: 63.492 kg

DRUGS (5)
  1. NEURONTIN [Suspect]
     Indication: BACK DISORDER
  2. NEURONTIN [Suspect]
     Indication: NERVE COMPRESSION
  3. NEURONTIN [Suspect]
     Indication: MUSCLE SPASMS
  4. NEURONTIN [Suspect]
     Indication: EXOSTOSIS
  5. NEURONTIN [Suspect]
     Indication: ARTHRITIS
     Dosage: 300 MG, 3X/DAY
     Dates: start: 20110801, end: 20120101

REACTIONS (4)
  - PAIN IN EXTREMITY [None]
  - EYE DISORDER [None]
  - MUSCLE SPASMS [None]
  - BACK PAIN [None]
